FAERS Safety Report 10716641 (Version 1)
Quarter: 2015Q1

REPORT INFORMATION
  Report Type: Spontaneous
  Country: SK (occurrence: SK)
  Receive Date: 20150116
  Receipt Date: 20150116
  Transmission Date: 20150721
  Serious: Yes (Death, Other)
  Sender: FDA-Public Use
  Company Number: SK-CELGENE-260-21880-14091943

PATIENT

DRUGS (2)
  1. DEXAMETHASONE. [Concomitant]
     Active Substance: DEXAMETHASONE
     Indication: PLASMA CELL MYELOMA
     Route: 065
  2. REVLIMID [Suspect]
     Active Substance: LENALIDOMIDE
     Indication: PLASMA CELL MYELOMA
     Route: 048
     Dates: start: 200802, end: 201110

REACTIONS (5)
  - Plasma cell myeloma [Fatal]
  - Cardiovascular disorder [Fatal]
  - Asthenia [Unknown]
  - Thrombocytopenia [Unknown]
  - Neutropenia [Unknown]
